FAERS Safety Report 6240311-0 (Version None)
Quarter: 2009Q2

REPORT INFORMATION
  Report Type: 
  Country: None (occurrence: None)
  Receive Date: 20090623
  Receipt Date: 20080702
  Transmission Date: 20091009
  Serious: No
  Sender: FDA-Public Use
  Company Number: US-ASTRAZENECA-2008UW13286

PATIENT
  Age: 8 Year
  Sex: Female
  Weight: 31.8 kg

DRUGS (2)
  1. PULMICORT FLEXHALER [Suspect]
     Indication: ASTHMA
     Route: 055
     Dates: start: 20070901, end: 20080601
  2. PULMICORT FLEXHALER [Suspect]
     Route: 055
     Dates: start: 20080601

REACTIONS (2)
  - INCORRECT DOSE ADMINISTERED [None]
  - THROAT IRRITATION [None]
